FAERS Safety Report 8506180-0 (Version None)
Quarter: 2012Q3

REPORT INFORMATION
  Report Type: 
  Country: None (occurrence: None)
  Receive Date: 20120712
  Receipt Date: 20120702
  Transmission Date: 20120928
  Serious: Yes (Hospitalization)
  Sender: FDA-Public Use
  Company Number: US-ELI_LILLY_AND_COMPANY-US201204000381

PATIENT
  Sex: Female

DRUGS (15)
  1. VITAMIN D [Concomitant]
     Dosage: UNK
  2. PRILOSEC [Concomitant]
     Dosage: UNK
  3. ASCORBIC ACID [Concomitant]
     Dosage: UNK
  4. MIRALAX [Concomitant]
     Dosage: UNK
  5. ICAPS [Concomitant]
     Dosage: UNK
  6. CHONDROITIN [Concomitant]
     Dosage: UNK
  7. FORTEO [Suspect]
     Dosage: 20 UG, QD
     Dates: start: 20120320
  8. ZOCOR [Concomitant]
     Dosage: UNK
  9. FORTEO [Suspect]
     Indication: OSTEOPOROSIS
     Dosage: 20 UG, QD
     Dates: start: 20120320
  10. MULTI-VITAMIN [Concomitant]
     Dosage: UNK
  11. TYLENOL (CAPLET) [Concomitant]
     Dosage: UNK
  12. CALCIUM [Concomitant]
     Dosage: UNK
  13. ASPIRIN [Concomitant]
     Dosage: UNK
  14. GLUCOSAMINE [Concomitant]
     Dosage: UNK
  15. IRON [Concomitant]
     Dosage: UNK

REACTIONS (2)
  - RECTAL HAEMORRHAGE [None]
  - INJECTION SITE PAIN [None]
